FAERS Safety Report 4652140-X (Version None)
Quarter: 2005Q2

REPORT INFORMATION
  Report Type: 
  Country: None (occurrence: None)
  Receive Date: 20050504
  Receipt Date: 20050218
  Transmission Date: 20051028
  Serious: Yes (Death, Hospitalization, Other)
  Sender: FDA-Public Use
  Company Number: 200511337US

PATIENT
  Sex: Female
  Weight: 66.4 kg

DRUGS (5)
  1. TAXOTERE [Suspect]
     Indication: BREAST CANCER
     Route: 042
     Dates: start: 20040806
  2. ADRIAMYCIN [Suspect]
     Indication: BREAST CANCER
     Route: 042
     Dates: start: 20040806
  3. CYTOXAN [Suspect]
     Indication: BREAST CANCER
     Route: 042
     Dates: start: 20040806
  4. NEULASTA [Concomitant]
     Indication: NEUTROPENIA
     Route: 058
     Dates: start: 20040809
  5. NEULASTA [Concomitant]
     Indication: PROPHYLAXIS
     Route: 058
     Dates: start: 20040809

REACTIONS (17)
  - ABDOMINAL PAIN [None]
  - ACUTE ABDOMEN [None]
  - DYSPEPSIA [None]
  - FACTOR V LEIDEN MUTATION [None]
  - FATIGUE [None]
  - GASTROINTESTINAL NECROSIS [None]
  - GASTROOESOPHAGEAL REFLUX DISEASE [None]
  - INFARCTION [None]
  - INTESTINAL INFARCTION [None]
  - INTESTINAL ISCHAEMIA [None]
  - LIVER DISORDER [None]
  - MULTI-ORGAN FAILURE [None]
  - NAUSEA [None]
  - NEUTROPENIA [None]
  - OVARIAN DISORDER [None]
  - PROTEIN C DEFICIENCY [None]
  - VOMITING [None]
